FAERS Safety Report 18077601 (Version 1)
Quarter: 2020Q3

REPORT INFORMATION
  Report Type: Spontaneous
  Country: US (occurrence: US)
  Receive Date: 20200727
  Receipt Date: 20200727
  Transmission Date: 20201103
  Serious: No
  Sender: FDA-Public Use
  Company Number: US-BAUSCH-BL-2020-019571

PATIENT
  Age: 66 Year
  Sex: Female

DRUGS (2)
  1. LACRISERT [Suspect]
     Active Substance: HYDROXYPROPYL CELLULOSE
     Dosage: IN EACH EYE
     Route: 047
     Dates: end: 202006
  2. LACRISERT [Suspect]
     Active Substance: HYDROXYPROPYL CELLULOSE
     Indication: DRY EYE
     Dosage: IN EACH EYE
     Route: 047
     Dates: start: 2009

REACTIONS (6)
  - Eye irritation [Not Recovered/Not Resolved]
  - Blepharitis [Not Recovered/Not Resolved]
  - Intentional product use issue [Unknown]
  - Product availability issue [Unknown]
  - Eye pruritus [Not Recovered/Not Resolved]
  - Therapy interrupted [Unknown]

NARRATIVE: CASE EVENT DATE: 2020
